FAERS Safety Report 7103040-7 (Version None)
Quarter: 2010Q4

REPORT INFORMATION
  Report Type: 
  Country: None (occurrence: None)
  Receive Date: 20101108
  Receipt Date: 20101027
  Transmission Date: 20110411
  Serious: Yes (Hospitalization)
  Sender: FDA-Public Use
  Company Number: 2010EU005129

PATIENT
  Age: 59 Year
  Sex: Male

DRUGS (2)
  1. FK463 (MICAFUNGIN) INJECTION [Suspect]
     Indication: ANTIFUNGAL PROPHYLAXIS
     Dosage: 100 MG, UID/QD, IV NOS
     Route: 042
     Dates: start: 20100305, end: 20100309
  2. PROGRAF [Concomitant]

REACTIONS (1)
  - LIVER TRANSPLANT REJECTION [None]
